FAERS Safety Report 6543588-7 (Version None)
Quarter: 2010Q1

REPORT INFORMATION
  Report Type: 
  Country: None (occurrence: None)
  Receive Date: 20100120
  Receipt Date: 20100105
  Transmission Date: 20100710
  Serious: Yes (Death)
  Sender: FDA-Public Use
  Company Number: US-TYCO HEALTHCARE/MALLINCKRODT-T201000033

PATIENT
  Age: 20 Year
  Sex: Male

DRUGS (6)
  1. OXYCODONE [Suspect]
     Dosage: UNK
     Route: 048
  2. FENTANYL [Suspect]
     Route: 048
  3. BUPRENORPHINE [Suspect]
     Dosage: UNK
     Route: 048
  4. ALPRAZOLAM [Suspect]
     Dosage: UNK
     Route: 048
  5. MARIJUANA [Suspect]
     Dosage: UNK
     Route: 048
  6. OPIOIDS [Suspect]
     Dosage: UNK
     Route: 048

REACTIONS (1)
  - DEATH [None]
